FAERS Safety Report 10191223 (Version 5)
Quarter: 2014Q4

REPORT INFORMATION
  Report Type: Spontaneous
  Country: US (occurrence: US)
  Receive Date: 20140523
  Receipt Date: 20141103
  Transmission Date: 20150528
  Serious: Yes (Hospitalization, Other)
  Sender: FDA-Public Use
  Company Number: US-009507513-1405USA010530

PATIENT
  Sex: Female
  Weight: 59.86 kg

DRUGS (4)
  1. ALENDRONATE SODIUM. [Suspect]
     Active Substance: ALENDRONATE SODIUM
     Indication: OSTEOPOROSIS
     Dosage: 70 MG, QW
     Route: 048
     Dates: start: 20080201, end: 20130208
  2. FOSAMAX [Suspect]
     Active Substance: ALENDRONATE SODIUM
     Dosage: 70 MG, QW
     Route: 048
     Dates: start: 20020325, end: 20120804
  3. FOSAMAX [Suspect]
     Active Substance: ALENDRONATE SODIUM
     Indication: OSTEOPOROSIS
     Dosage: 10 MG, UNK
     Route: 048
     Dates: start: 199904, end: 200106
  4. CALCIUM (UNSPECIFIED) [Concomitant]
     Active Substance: CALCIUM
     Indication: OSTEOPOROSIS
     Dosage: 500 MG, UNK
     Dates: start: 1999

REACTIONS (14)
  - Anaemia postoperative [Recovered/Resolved]
  - Mastectomy [Unknown]
  - Arthralgia [Unknown]
  - Low turnover osteopathy [Unknown]
  - Foot fracture [Unknown]
  - Endodontic procedure [Unknown]
  - Hypokalaemia [Unknown]
  - Urinary tract infection [Unknown]
  - Femur fracture [Recovered/Resolved]
  - Hysterectomy [Unknown]
  - Kyphosis [Unknown]
  - Oedema peripheral [Unknown]
  - Intramedullary rod insertion [Unknown]
  - Chronic kidney disease [Not Recovered/Not Resolved]

NARRATIVE: CASE EVENT DATE: 20000302
